FAERS Safety Report 6819156-6 (Version None)
Quarter: 2010Q2

REPORT INFORMATION
  Report Type: 
  Country: None (occurrence: None)
  Receive Date: 20100630
  Receipt Date: 20100623
  Transmission Date: 20101027
  Serious: Yes (Other)
  Sender: FDA-Public Use
  Company Number: 10-226

PATIENT
  Age: 30 Year
  Sex: Female

DRUGS (1)
  1. ALEVE [Suspect]
     Indication: MIGRAINE
     Dosage: 880 MG, DAILY, ORAL
     Route: 048
     Dates: start: 20100617

REACTIONS (7)
  - BODY TEMPERATURE DECREASED [None]
  - HYPOAESTHESIA [None]
  - OVERDOSE [None]
  - PALLOR [None]
  - PALPITATIONS [None]
  - PARALYSIS [None]
  - TREMOR [None]
